FAERS Safety Report 8075300-7 (Version None)
Quarter: 2012Q1

REPORT INFORMATION
  Report Type: 
  Country: None (occurrence: None)
  Receive Date: 20120127
  Receipt Date: 20120116
  Transmission Date: 20120608
  Serious: Yes (Other)
  Sender: FDA-Public Use
  Company Number: FR-ELI_LILLY_AND_COMPANY-FR201108003560

PATIENT
  Sex: Female
  Weight: 44 kg

DRUGS (7)
  1. FORTEO [Suspect]
     Indication: OSTEOPOROSIS
     Dosage: 20 UG, QD
     Route: 058
     Dates: start: 20101117, end: 20110601
  2. NEXIUM [Concomitant]
  3. PAROXETINE HCL [Concomitant]
  4. ASPIRIN [Concomitant]
  5. SPIRIVA [Concomitant]
  6. FORADIL [Concomitant]
  7. DILTIAZEM HCL [Concomitant]

REACTIONS (6)
  - LUNG ADENOCARCINOMA [None]
  - BRONCHITIS [None]
  - PYREXIA [None]
  - MUSCULOSKELETAL PAIN [None]
  - HYPERCALCAEMIA [None]
  - CHEST PAIN [None]
